FAERS Safety Report 23495579 (Version 1)
Quarter: 2024Q1

REPORT INFORMATION
  Report Type: Report from Study
  Country: IE (occurrence: IE)
  Receive Date: 20240207
  Receipt Date: 20240207
  Transmission Date: 20240410
  Serious: Yes (Other)
  Sender: FDA-Public Use
  Company Number: IE-SHIRE-IE201942400

PATIENT
  Sex: Female

DRUGS (40)
  1. TOPAMAX [Suspect]
     Active Substance: TOPIRAMATE
     Indication: Product used for unknown indication
     Dosage: UNK
     Route: 048
  2. AGALSIDASE ALFA [Suspect]
     Active Substance: AGALSIDASE ALFA
     Indication: Fabry^s disease
     Dosage: 17.5 MILLIGRAM, Q2WEEKS
     Route: 042
  3. AGALSIDASE ALFA [Suspect]
     Active Substance: AGALSIDASE ALFA
     Dosage: 17.5 MILLIGRAM, Q2WEEKS
     Route: 042
     Dates: start: 20220823
  4. AGALSIDASE ALFA [Suspect]
     Active Substance: AGALSIDASE ALFA
     Dosage: 17.5 MILLIGRAM, Q2WEEKS
     Route: 042
     Dates: start: 20220919
  5. AGALSIDASE ALFA [Suspect]
     Active Substance: AGALSIDASE ALFA
     Dosage: 17.5 MILLIGRAM, Q2WEEKS
     Route: 042
  6. AGALSIDASE ALFA [Suspect]
     Active Substance: AGALSIDASE ALFA
     Dosage: 17.5 MILLIGRAM, Q2WEEKS
     Route: 042
  7. AGALSIDASE ALFA [Suspect]
     Active Substance: AGALSIDASE ALFA
     Dosage: 17.5 MILLIGRAM, Q2WEEKS
     Route: 042
  8. AGALSIDASE ALFA [Suspect]
     Active Substance: AGALSIDASE ALFA
     Dosage: 17.5 MILLIGRAM, Q2WEEKS
     Route: 042
     Dates: start: 20230529
  9. AGALSIDASE ALFA [Suspect]
     Active Substance: AGALSIDASE ALFA
     Dosage: 17.5 MILLIGRAM, Q2WEEKS
     Route: 042
  10. AGALSIDASE ALFA [Suspect]
     Active Substance: AGALSIDASE ALFA
     Dosage: 17.5 MILLIGRAM, Q2WEEKS
     Route: 042
     Dates: start: 20130821
  11. SPIKEVAX (ELASOMERAN) [Suspect]
     Active Substance: ELASOMERAN
     Indication: COVID-19 immunisation
     Dosage: UNK
     Route: 065
  12. LIPITOR [Concomitant]
     Active Substance: ATORVASTATIN CALCIUM
     Indication: Product used for unknown indication
     Dosage: 20 MILLIGRAM, QD
  13. CANDESARTAN [Concomitant]
     Active Substance: CANDESARTAN
     Dosage: 8 MILLIGRAM, QD
  14. ASPIRIN [Concomitant]
     Active Substance: ASPIRIN
     Indication: Product used for unknown indication
     Dosage: 75 MILLIGRAM
  15. CEFUROXIME [Concomitant]
     Active Substance: CEFUROXIME
     Indication: Product used for unknown indication
     Dosage: 500 MILLIGRAM, 2X/DAY:BID
  16. TEGRETOL [Concomitant]
     Active Substance: CARBAMAZEPINE
     Dosage: 400 MILLIGRAM
  17. TEGRETOL [Concomitant]
     Active Substance: CARBAMAZEPINE
     Dosage: 300 MILLIGRAM
  18. NARATRIPTAN [Concomitant]
     Active Substance: NARATRIPTAN HYDROCHLORIDE
     Indication: Product used for unknown indication
     Dosage: 2.5 MILLIGRAM
  19. FLUNARIZINE [Concomitant]
     Active Substance: FLUNARIZINE
     Indication: Product used for unknown indication
     Dosage: 5 MILLIGRAM, QD
  20. PROPRANOLOL HYDROCHLORIDE [Concomitant]
     Active Substance: PROPRANOLOL HYDROCHLORIDE
     Indication: Product used for unknown indication
     Dosage: 80 MILLIGRAM, QD
  21. DYMISTA [Concomitant]
     Active Substance: AZELASTINE HYDROCHLORIDE\FLUTICASONE PROPIONATE
     Indication: Product used for unknown indication
     Dosage: UNK
  22. LISINOPRIL [Concomitant]
     Active Substance: LISINOPRIL
     Indication: Product used for unknown indication
     Dosage: 10 MILLIGRAM
  23. MAGNESIUM OXIDE [Concomitant]
     Active Substance: MAGNESIUM OXIDE
     Dosage: 250 MILLIGRAM, TID
  24. AMITRIPTYLINE [Concomitant]
     Active Substance: AMITRIPTYLINE
     Indication: Rhinitis
     Dosage: 50 MILLIGRAM, QD
  25. AUGMENTIN [Concomitant]
     Active Substance: AMOXICILLIN\CLAVULANATE POTASSIUM
     Indication: Nasal congestion
     Dosage: 500 MILLIGRAM, BID
  26. AUGMENTIN [Concomitant]
     Active Substance: AMOXICILLIN\CLAVULANATE POTASSIUM
     Indication: Cough
  27. AUGMENTIN [Concomitant]
     Active Substance: AMOXICILLIN\CLAVULANATE POTASSIUM
     Indication: Dizziness
  28. AUGMENTIN [Concomitant]
     Active Substance: AMOXICILLIN\CLAVULANATE POTASSIUM
     Indication: Syncope
  29. ACETAMINOPHEN [Concomitant]
     Active Substance: ACETAMINOPHEN
     Dosage: 1 GRAM
  30. IRON [Concomitant]
     Active Substance: IRON
     Indication: Product used for unknown indication
     Dosage: 17 MILLIGRAM, QD
  31. ARTHROTEC [Concomitant]
     Active Substance: DICLOFENAC SODIUM\MISOPROSTOL
     Indication: Product used for unknown indication
     Dosage: 75 MILLIGRAM, BID
  32. ARTHROTEC [Concomitant]
     Active Substance: DICLOFENAC SODIUM\MISOPROSTOL
     Dosage: 75 MILLIGRAM, BID
  33. TRAMADOL [Concomitant]
     Active Substance: TRAMADOL\TRAMADOL HYDROCHLORIDE
     Indication: Product used for unknown indication
     Dosage: 100 MILLIGRAM, TID
  34. PREDNISOLONE [Concomitant]
     Active Substance: PREDNISOLONE
     Indication: Product used for unknown indication
     Dosage: 30 MILLIGRAM, QD
  35. BRINTELLIX [Concomitant]
     Active Substance: VORTIOXETINE HYDROBROMIDE
     Dosage: 10 MILLIGRAM, QD
  36. BRINTELLIX [Concomitant]
     Active Substance: VORTIOXETINE HYDROBROMIDE
     Dosage: 20 MILLIGRAM, QD
  37. BRINTELLIX [Concomitant]
     Active Substance: VORTIOXETINE HYDROBROMIDE
     Dosage: 15 MILLIGRAM, QD
  38. RIBOFLAVIN [Concomitant]
     Active Substance: RIBOFLAVIN
     Indication: Product used for unknown indication
     Dosage: 100 MILLIGRAM, BID
  39. DIFLUCAN [Concomitant]
     Active Substance: FLUCONAZOLE
     Indication: Product used for unknown indication
     Dosage: 50 MILLIGRAM, QD
  40. AJOVY [Concomitant]
     Active Substance: FREMANEZUMAB-VFRM
     Dosage: 225 MILLIGRAM

REACTIONS (42)
  - Syncope [Recovering/Resolving]
  - Breast abscess [Recovered/Resolved]
  - Myalgia [Not Recovered/Not Resolved]
  - Rhinitis [Recovered/Resolved]
  - Nasal congestion [Recovering/Resolving]
  - Hypertension [Not Recovered/Not Resolved]
  - Affective disorder [Recovered/Resolved]
  - Flank pain [Recovered/Resolved]
  - Influenza like illness [Recovering/Resolving]
  - Heart rate decreased [Not Recovered/Not Resolved]
  - Peripheral coldness [Not Recovered/Not Resolved]
  - Skin discolouration [Not Recovered/Not Resolved]
  - Asthenia [Not Recovered/Not Resolved]
  - Headache [Recovering/Resolving]
  - Nausea [Recovered/Resolved]
  - Increased tendency to bruise [Unknown]
  - Contusion [Not Recovered/Not Resolved]
  - Condition aggravated [Not Recovered/Not Resolved]
  - Blood pressure abnormal [Recovered/Resolved]
  - Dizziness [Recovering/Resolving]
  - Diarrhoea [Recovered/Resolved]
  - Neuralgia [Not Recovered/Not Resolved]
  - Ill-defined disorder [Not Recovered/Not Resolved]
  - Paraesthesia [Not Recovered/Not Resolved]
  - Nerve block [Not Recovered/Not Resolved]
  - Dental discomfort [Unknown]
  - Fatigue [Not Recovered/Not Resolved]
  - Frustration tolerance decreased [Not Recovered/Not Resolved]
  - Migraine [Recovering/Resolving]
  - Somnolence [Not Recovered/Not Resolved]
  - Lethargy [Not Recovered/Not Resolved]
  - Cough [Recovering/Resolving]
  - Clumsiness [Not Recovered/Not Resolved]
  - Blood pressure diastolic increased [Recovering/Resolving]
  - Anger [Not Recovered/Not Resolved]
  - Hypoaesthesia [Not Recovered/Not Resolved]
  - Drug ineffective [Recovering/Resolving]
  - Pain [Not Recovered/Not Resolved]
  - Inappropriate schedule of product administration [Unknown]
  - COVID-19 [Recovering/Resolving]
  - Nerve injury [Not Recovered/Not Resolved]
  - Cardiac disorder [Unknown]

NARRATIVE: CASE EVENT DATE: 20190501
